FAERS Safety Report 4424964-5 (Version None)
Quarter: 2004Q3

REPORT INFORMATION
  Report Type: 
  Country: None (occurrence: None)
  Receive Date: 20040811
  Receipt Date: 20040811
  Transmission Date: 20050211
  Serious: Yes (Hospitalization)
  Sender: FDA-Public Use
  Company Number: None

PATIENT
  Age: 82 Year
  Sex: Male
  Weight: 49.8957 kg

DRUGS (3)
  1. GAMIMUNE [Suspect]
     Indication: NEUROPATHY PERIPHERAL
     Dosage: 20 GM IV
     Route: 042
     Dates: start: 20031201
  2. ASPIRIN [Concomitant]
  3. TYLENOL [Concomitant]

REACTIONS (2)
  - DERMATITIS EXFOLIATIVE [None]
  - LOCALISED SKIN REACTION [None]
